FAERS Safety Report 6552782-0 (Version None)
Quarter: 2010Q1

REPORT INFORMATION
  Report Type: 
  Country: None (occurrence: None)
  Receive Date: 20100126
  Receipt Date: 20100122
  Transmission Date: 20100710
  Serious: Yes (Hospitalization)
  Sender: FDA-Public Use
  Company Number: US-GILEAD-2010-0026627

PATIENT
  Sex: Female
  Weight: 91.254 kg

DRUGS (18)
  1. LETAIRIS [Suspect]
     Indication: PULMONARY ARTERIAL HYPERTENSION
     Route: 048
     Dates: start: 20091125
  2. VENTAVIS [Concomitant]
  3. REVATIO [Concomitant]
  4. COUMADIN [Concomitant]
  5. LASIX [Concomitant]
  6. ALDACTONE [Concomitant]
  7. PRINIVIL [Concomitant]
  8. LANOXIN [Concomitant]
  9. LANTUS [Concomitant]
  10. HUMALOG [Concomitant]
  11. PEPCID [Concomitant]
  12. LEVOTHYROXINE SODIUM [Concomitant]
  13. TRAZODONE [Concomitant]
  14. ABILIFY [Concomitant]
  15. ZOLOFT [Concomitant]
  16. ASPIRIN [Concomitant]
  17. CLONAZEPAM [Concomitant]
  18. KLOR-CON [Concomitant]

REACTIONS (1)
  - HEPATIC STEATOSIS [None]
